FAERS Safety Report 6435361-5 (Version None)
Quarter: 2009Q4

REPORT INFORMATION
  Report Type: 
  Country: None (occurrence: None)
  Receive Date: 20091106
  Receipt Date: 20091105
  Transmission Date: 20100525
  Serious: Yes (Hospitalization, Other)
  Sender: FDA-Public Use
  Company Number: WWISSUE-366

PATIENT
  Sex: Male

DRUGS (2)
  1. PHENOBARBITAL TAB [Suspect]
     Dates: start: 20060101
  2. PHENYTOIN SODIUM [Concomitant]

REACTIONS (2)
  - CONVULSION [None]
  - STEVENS-JOHNSON SYNDROME [None]
